FAERS Safety Report 13121653 (Version 1)
Quarter: 2017Q1

REPORT INFORMATION
  Report Type: Spontaneous
  Country: SE (occurrence: SE)
  Receive Date: 20170117
  Receipt Date: 20170117
  Transmission Date: 20170428
  Serious: Yes (Other)
  Sender: FDA-Public Use
  Company Number: SE-PFIZER INC-2017013065

PATIENT
  Age: 32 Year
  Sex: Female

DRUGS (3)
  1. ORUDIS [Concomitant]
     Active Substance: KETOPROFEN
     Dosage: 200 MG, UNK
  2. PREDNISOLONE. [Concomitant]
     Active Substance: PREDNISOLONE
     Dosage: 5 MG, UNK
  3. SALAZOPYRIN [Suspect]
     Active Substance: SULFASALAZINE
     Indication: SPONDYLITIS
     Dosage: 1500 MG, UNK
     Dates: start: 20160204, end: 20170105

REACTIONS (4)
  - Haemorrhagic diathesis [Not Recovered/Not Resolved]
  - Melaena [Unknown]
  - Product use issue [Unknown]
  - Contusion [Unknown]

NARRATIVE: CASE EVENT DATE: 20160204
